FAERS Safety Report 7085105-1 (Version None)
Quarter: 2010Q4

REPORT INFORMATION
  Report Type: 
  Country: None (occurrence: None)
  Receive Date: 20101027
  Receipt Date: 20101021
  Transmission Date: 20110411
  Serious: Yes (Other)
  Sender: FDA-Public Use
  Company Number: 2010SP056574

PATIENT
  Age: 66 Year
  Sex: Female
  Weight: 45 kg

DRUGS (2)
  1. ORMIGREIN (ORMIGREIN 01755201/) [Suspect]
     Indication: MIGRAINE
     Dosage: PO
     Route: 048
     Dates: start: 19800101
  2. CRESTOR [Concomitant]

REACTIONS (6)
  - DRUG DEPENDENCE [None]
  - HYPERSOMNIA [None]
  - MUSCULAR WEAKNESS [None]
  - NAUSEA [None]
  - PAIN [None]
  - VISION BLURRED [None]
